FAERS Safety Report 4382201-4 (Version None)
Quarter: 2004Q2

REPORT INFORMATION
  Report Type: 
  Country: None (occurrence: None)
  Receive Date: 20040618
  Receipt Date: 20040618
  Transmission Date: 20050107
  Serious: Yes (Hospitalization)
  Sender: FDA-Public Use
  Company Number: None

PATIENT
  Sex: Male
  Weight: 94 kg

DRUGS (5)
  1. IFNA1B [Suspect]
     Indication: RENAL CANCER METASTATIC
     Dosage: 540 MCG QD SC
     Route: 058
     Dates: start: 20040209
  2. ACCUPRIL [Concomitant]
  3. ALLEGRA-D [Concomitant]
  4. ZOCOR [Concomitant]
  5. VIAGRA [Concomitant]

REACTIONS (2)
  - CARDIAC ENZYMES INCREASED [None]
  - CHEST PAIN [None]
